FAERS Safety Report 7660333-2 (Version None)
Quarter: 2011Q3

REPORT INFORMATION
  Report Type: 
  Country: None (occurrence: None)
  Receive Date: 20110805
  Receipt Date: 20110725
  Transmission Date: 20111222
  Serious: Yes (Other)
  Sender: FDA-Public Use
  Company Number: US-ELI_LILLY_AND_COMPANY-US201107008071

PATIENT
  Sex: Male

DRUGS (6)
  1. LANTUS [Concomitant]
     Dosage: 40 U, EACH EVENING
  2. LANTUS [Concomitant]
     Dosage: 44 U, EACH EVENING
  3. LANTUS [Concomitant]
     Dosage: 35 U, EACH EVENING
  4. HUMALOG MIX 50/50 [Suspect]
     Dosage: 20 U, BID
  5. HUMALOG MIX 50/50 [Suspect]
     Indication: TYPE 2 DIABETES MELLITUS
     Dosage: 50 U, BID
  6. METFORMIN HCL [Concomitant]

REACTIONS (5)
  - TRANSIENT ISCHAEMIC ATTACK [None]
  - ABNORMAL BEHAVIOUR [None]
  - INCORRECT DOSE ADMINISTERED [None]
  - MUSCLE DISORDER [None]
  - HYPERHIDROSIS [None]
